FAERS Safety Report 25366167 (Version 1)
Quarter: 2025Q2

REPORT INFORMATION
  Report Type: Spontaneous
  Country: US (occurrence: US)
  Receive Date: 20250528
  Receipt Date: 20250528
  Transmission Date: 20250716
  Serious: Yes (Other)
  Sender: CELLTRION
  Company Number: US-CELLTRION INC.-2025US008077

PATIENT

DRUGS (5)
  1. ADALIMUMAB [Suspect]
     Active Substance: ADALIMUMAB
     Indication: Rheumatoid arthritis
  2. METHOTREXATE [Suspect]
     Active Substance: METHOTREXATE
     Indication: Rheumatoid arthritis
  3. COVID-19 VACCINE MRNA [Concomitant]
     Dosage: 4 WEEKS APART
  4. COVID-19 VACCINE MRNA [Concomitant]
     Dosage: 4 WEEKS APART
  5. COVID-19 VACCINE MRNA [Concomitant]

REACTIONS (1)
  - Immune reconstitution inflammatory syndrome associated tuberculosis [Recovering/Resolving]
